FAERS Safety Report 7993943-3 (Version None)
Quarter: 2011Q4

REPORT INFORMATION
  Report Type: 
  Country: None (occurrence: None)
  Receive Date: 20111215
  Receipt Date: 20111207
  Transmission Date: 20120403
  Serious: Yes (Other)
  Sender: FDA-Public Use
  Company Number: CL-360-2011

PATIENT
  Age: 50 Year
  Sex: Female

DRUGS (2)
  1. TINIDAZOLE [Suspect]
     Indication: DIARRHOEA
  2. METRONIDAZOLE [Suspect]
     Indication: DIARRHOEA

REACTIONS (8)
  - NORMOCHROMIC NORMOCYTIC ANAEMIA [None]
  - VASCULITIS [None]
  - PERIPHERAL SENSORIMOTOR NEUROPATHY [None]
  - GAIT DISTURBANCE [None]
  - AXONAL NEUROPATHY [None]
  - ENCEPHALOPATHY [None]
  - SKIN HYPERPIGMENTATION [None]
  - LEUKOPENIA [None]
